FAERS Safety Report 19785761 (Version 1)
Quarter: 2021Q3

REPORT INFORMATION
  Report Type: Spontaneous
  Country: US (occurrence: US)
  Receive Date: 20210903
  Receipt Date: 20210903
  Transmission Date: 20211014
  Serious: No
  Sender: FDA-Public Use
  Company Number: US-VELOXIS PHARMACEUTICALS-2020VELUS-001031

PATIENT
  Sex: Female

DRUGS (2)
  1. ENVARSUS XR [Suspect]
     Active Substance: TACROLIMUS
     Indication: PRODUCT USED FOR UNKNOWN INDICATION
     Dosage: 9 MILLIGRAM, QD (STRENGTH 4 MG)
     Route: 065
     Dates: start: 202005
  2. ENVARSUS XR [Suspect]
     Active Substance: TACROLIMUS
     Dosage: 9 MILLIGRAM, QD (STRENGTH 1 MG)
     Route: 065
     Dates: start: 202005

REACTIONS (3)
  - Vision blurred [Unknown]
  - Diarrhoea [Unknown]
  - Tremor [Unknown]
